FAERS Safety Report 5121234-7 (Version None)
Quarter: 2006Q4

REPORT INFORMATION
  Report Type: 
  Country: None (occurrence: None)
  Receive Date: 20061002
  Receipt Date: 20060921
  Transmission Date: 20070319
  Serious: Yes (Other)
  Sender: FDA-Public Use
  Company Number: US-2006-028297

PATIENT
  Age: 36 Year
  Sex: Female

DRUGS (2)
  1. YASMIN [Suspect]
     Indication: PREMENSTRUAL SYNDROME
     Dosage: 1 TAB(S), 1X/DAY, ORAL; 1 TAB(S), 1X/DAY, ORAL
     Route: 048
  2. YASMIN [Suspect]
     Indication: PREMENSTRUAL SYNDROME
     Dosage: 1 TAB(S), 1X/DAY, ORAL; 1 TAB(S), 1X/DAY, ORAL
     Route: 048

REACTIONS (15)
  - ANOREXIA [None]
  - CHEST PAIN [None]
  - CHILLS [None]
  - DEHYDRATION [None]
  - FATIGUE [None]
  - FEELING ABNORMAL [None]
  - FOOD POISONING [None]
  - INFLUENZA LIKE ILLNESS [None]
  - NAUSEA [None]
  - NEOPLASM MALIGNANT [None]
  - PREGNANCY [None]
  - PYREXIA [None]
  - VERTIGO [None]
  - VOMITING [None]
  - WEIGHT INCREASED [None]
